FAERS Safety Report 6532106-5 (Version None)
Quarter: 2010Q1

REPORT INFORMATION
  Report Type: 
  Country: None (occurrence: None)
  Receive Date: 20100108
  Receipt Date: 20091230
  Transmission Date: 20100710
  Serious: Yes (Hospitalization)
  Sender: FDA-Public Use
  Company Number: US-JNJFOC-20100100375

PATIENT
  Age: 62 Year
  Sex: Female
  Weight: 90.72 kg

DRUGS (3)
  1. TYLENOL 8 HOUR MUSCLES + PAIN [Suspect]
     Route: 048
  2. TYLENOL 8 HOUR MUSCLES + PAIN [Suspect]
     Indication: ARTHRALGIA
     Dosage: FOR APPROXIMATELY 2 MONTHS
     Route: 048
  3. MULTI-VITAMINS [Concomitant]
     Indication: MEDICAL DIET

REACTIONS (4)
  - GAIT DISTURBANCE [None]
  - MUSCULAR WEAKNESS [None]
  - VERTIGO [None]
  - VOMITING [None]
